FAERS Safety Report 15674828 (Version 1)
Quarter: 2018Q4

REPORT INFORMATION
  Report Type: Spontaneous
  Country: US (occurrence: US)
  Receive Date: 20181119
  Receipt Date: 20181119
  Transmission Date: 20190205
  Serious: No
  Sender: FDA-Public Use
  Company Number: None

PATIENT
  Age: 66 Year
  Sex: Female

DRUGS (4)
  1. DULOXETINE. [Concomitant]
     Active Substance: DULOXETINE
  2. ELIQUIS [Concomitant]
     Active Substance: APIXABAN
  3. METOPROLOL. [Concomitant]
     Active Substance: METOPROLOL
  4. HARVONI [Suspect]
     Active Substance: LEDIPASVIR\SOFOSBUVIR
     Route: 048
     Dates: start: 20181022

REACTIONS (1)
  - Headache [None]

NARRATIVE: CASE EVENT DATE: 20181116
